FAERS Safety Report 8906349 (Version 1)
Quarter: 2012Q4

REPORT INFORMATION
  Report Type: Spontaneous
  Country: US (occurrence: None)
  Receive Date: 20121108
  Receipt Date: 20121108
  Transmission Date: 20130627
  Serious: Yes (Hospitalization, Other)
  Sender: FDA-Public Use
  Company Number: AXC-2012-000522

PATIENT
  Sex: Male

DRUGS (3)
  1. MESALAMINE [Suspect]
     Indication: ULCERATIVE COLITIS
  2. MESALAMINE [Suspect]
     Indication: ULCERATIVE COLITIS
  3. MESALAMINE [Suspect]
     Route: 048

REACTIONS (3)
  - Pericarditis [None]
  - Pericardial effusion [None]
  - Atrial fibrillation [None]
